FAERS Safety Report 13348851 (Version 1)
Quarter: 2017Q1

REPORT INFORMATION
  Report Type: Spontaneous
  Country: US (occurrence: US)
  Receive Date: 20170320
  Receipt Date: 20170320
  Transmission Date: 20170428
  Serious: No
  Sender: FDA-Public Use
  Company Number: US-TEVA-642536USA

PATIENT
  Sex: Male
  Weight: 65.83 kg

DRUGS (2)
  1. ESCITALOPRAM [Suspect]
     Active Substance: ESCITALOPRAM OXALATE
     Indication: MAJOR DEPRESSION
     Dates: start: 20160305
  2. FLONASE [Concomitant]
     Active Substance: FLUTICASONE PROPIONATE

REACTIONS (6)
  - Feeling abnormal [Unknown]
  - Epistaxis [Unknown]
  - Dizziness [Unknown]
  - Agitation [Unknown]
  - Nervousness [Unknown]
  - Inappropriate schedule of drug administration [Unknown]
